FAERS Safety Report 6533175-9 (Version None)
Quarter: 2010Q1

REPORT INFORMATION
  Report Type: 
  Country: None (occurrence: None)
  Receive Date: 20100111
  Receipt Date: 20100107
  Transmission Date: 20100710
  Serious: Yes (Hospitalization)
  Sender: FDA-Public Use
  Company Number: CH-BRISTOL-MYERS SQUIBB COMPANY-14924450

PATIENT
  Age: 73 Year
  Sex: Female

DRUGS (1)
  1. COAPROVEL [Suspect]
     Route: 048
     Dates: start: 20090801, end: 20090801

REACTIONS (7)
  - CAPILLARY LEAK SYNDROME [None]
  - CHEST PAIN [None]
  - DIZZINESS [None]
  - DYSPNOEA [None]
  - HYPERHIDROSIS [None]
  - PULMONARY EMBOLISM [None]
  - VOMITING [None]
